FAERS Safety Report 4887217-7 (Version None)
Quarter: 2005Q4

REPORT INFORMATION
  Report Type: 
  Country: None (occurrence: None)
  Receive Date: 20051220
  Receipt Date: 20041206
  Transmission Date: 20060501
  Serious: Yes (Other)
  Sender: FDA-Public Use
  Company Number: HQWYE873209DEC04

PATIENT
  Age: 21 Year
  Sex: Female
  Weight: 59.02 kg

DRUGS (3)
  1. EFFEXOR XR [Suspect]
     Indication: OBSESSIVE-COMPULSIVE DISORDER
     Dosage: 75 MG 2X PER 1 DAY, ORAL
     Route: 048
  2. IODINE (IODINE) [Concomitant]
  3. SYNTHROID [Concomitant]

REACTIONS (3)
  - DISTURBANCE IN ATTENTION [None]
  - INSOMNIA [None]
  - PANIC ATTACK [None]
